FAERS Safety Report 6159347-3 (Version None)
Quarter: 2009Q2

REPORT INFORMATION
  Report Type: 
  Country: None (occurrence: None)
  Receive Date: 20090415
  Receipt Date: 20090415
  Transmission Date: 20091009
  Serious: Yes (Death)
  Sender: FDA-Public Use
  Company Number: None

PATIENT
  Sex: Female

DRUGS (2)
  1. FLUDARABINE PHOSPHATE [Suspect]
     Indication: STEM CELL TRANSPLANT
     Dosage: 54 MG DAILY IV DRIP
     Route: 041
     Dates: start: 20080812, end: 20080816
  2. MELPHALAN [Suspect]
     Dosage: 126MG DAILY IV DRIP
     Route: 041
     Dates: start: 20080816, end: 20080817

REACTIONS (3)
  - BLOOD COUNT ABNORMAL [None]
  - ENGRAFT FAILURE [None]
  - PNEUMONIA FUNGAL [None]
